FAERS Safety Report 7004040-8 (Version None)
Quarter: 2010Q3

REPORT INFORMATION
  Report Type: 
  Country: None (occurrence: None)
  Receive Date: 20100920
  Receipt Date: 20100125
  Transmission Date: 20110219
  Serious: No
  Sender: FDA-Public Use
  Company Number: US-WYE-H13145110

PATIENT
  Sex: Female

DRUGS (3)
  1. PRISTIQ [Suspect]
     Indication: ANGER
     Route: 048
     Dates: start: 20091201
  2. ESTRADIOL [Concomitant]
  3. SPIRIVA [Concomitant]

REACTIONS (3)
  - ALOPECIA [None]
  - NAUSEA [None]
  - SENSATION OF FOREIGN BODY [None]
